FAERS Safety Report 8237075-8 (Version None)
Quarter: 2012Q1

REPORT INFORMATION
  Report Type: 
  Country: None (occurrence: None)
  Receive Date: 20120327
  Receipt Date: 20120323
  Transmission Date: 20120608
  Serious: Yes (Other)
  Sender: FDA-Public Use
  Company Number: US-PFIZER INC-2012076168

PATIENT
  Sex: Female
  Weight: 105.67 kg

DRUGS (6)
  1. PROCARDIA XL [Suspect]
     Indication: HYPERTENSION
     Dosage: 90 MG, 1X/DAY
     Route: 048
     Dates: start: 20120214, end: 20120312
  2. PROCARDIA XL [Suspect]
     Dosage: 90 MG, 2X/DAY
     Route: 048
     Dates: start: 20120313
  3. COREG [Concomitant]
     Dosage: 25 MG, 2X/DAY
  4. AVAPRO [Concomitant]
     Dosage: 300 MG, 1X/DAY
  5. TENEX [Concomitant]
     Dosage: 1 MG, 1X/DAY
  6. LASIX [Concomitant]
     Dosage: 40 MG, 2X/DAY

REACTIONS (5)
  - DRUG EFFECT DECREASED [None]
  - OEDEMA PERIPHERAL [None]
  - RENAL IMPAIRMENT [None]
  - HYPERTENSION [None]
  - WEIGHT FLUCTUATION [None]
